FAERS Safety Report 24069636 (Version 1)
Quarter: 2024Q3

REPORT INFORMATION
  Report Type: Spontaneous
  Country: US (occurrence: US)
  Receive Date: 20240710
  Receipt Date: 20240710
  Transmission Date: 20241016
  Serious: No
  Sender: ROCHE
  Company Number: US-ROCHE-3564558

PATIENT
  Sex: Female
  Weight: 54.43 kg

DRUGS (5)
  1. VABYSMO [Suspect]
     Active Substance: FARICIMAB\FARICIMAB-SVOA
     Indication: Neovascular age-related macular degeneration
     Dosage: DOSING HAS NOT BEEN CONTINUOUS (SEE ADDITIONAL INFORMATION) ;ONGOING: NO
     Route: 050
     Dates: start: 202401
  2. VABYSMO [Suspect]
     Active Substance: FARICIMAB\FARICIMAB-SVOA
     Dosage: EVERY 6 TO 8 WEEKS ;ONGOING: YES
     Route: 050
  3. CORTISONE [Concomitant]
     Active Substance: CORTISONE
     Indication: Back pain
  4. CORTISONE [Concomitant]
     Active Substance: CORTISONE
     Indication: Neck pain
  5. PRALUENT [Concomitant]
     Active Substance: ALIROCUMAB
     Indication: Blood cholesterol increased
     Route: 058
     Dates: start: 2022

REACTIONS (2)
  - Drug ineffective [Unknown]
  - No adverse event [Unknown]

NARRATIVE: CASE EVENT DATE: 20240101
